FAERS Safety Report 8561184-7 (Version None)
Quarter: 2012Q3

REPORT INFORMATION
  Report Type: 
  Country: None (occurrence: None)
  Receive Date: 20120802
  Receipt Date: 20120802
  Transmission Date: 20120928
  Serious: Yes (Hospitalization)
  Sender: FDA-Public Use
  Company Number: ES-AMGEN-ESPCT2012000532

PATIENT
  Age: 41 Year
  Sex: Female
  Weight: 54.6 kg

DRUGS (11)
  1. VITAMIN D [Concomitant]
     Dosage: UNK
     Route: 048
     Dates: start: 20111006
  2. FLUIDASA [Concomitant]
     Route: 048
     Dates: start: 20111206, end: 20111212
  3. DENOSUMAB [Suspect]
     Indication: BREAST CANCER
     Dosage: 120 MG, UNK
     Route: 058
     Dates: start: 20101006
  4. IBUPROFEN [Concomitant]
     Route: 048
     Dates: start: 20111118
  5. NOCTAMID [Concomitant]
     Route: 048
     Dates: start: 20111117
  6. RINOBACTIL [Concomitant]
     Route: 048
     Dates: start: 20111206, end: 20111213
  7. OFARSIN [Concomitant]
     Dosage: UNK
     Route: 047
     Dates: start: 20111206
  8. DOXORUBICIN HYDROCHLORIDE [Concomitant]
     Dosage: 74 MG, Q3WK
     Route: 042
     Dates: start: 20111006
  9. DOCETAXEL [Concomitant]
     Dosage: 111 MG, Q3WK
     Route: 042
     Dates: start: 20111006
  10. CYCLOPHOSPHAMIDE [Concomitant]
     Dosage: 740 MG, Q3WK
     Route: 042
     Dates: start: 20111006
  11. CALCIUM [Concomitant]
     Route: 048
     Dates: start: 20111006, end: 20120507

REACTIONS (1)
  - PNEUMONIA [None]
